FAERS Safety Report 9790558 (Version 2)
Quarter: 2014Q2

REPORT INFORMATION
  Report Type: Spontaneous
  Country: US (occurrence: US)
  Receive Date: 20131231
  Receipt Date: 20140618
  Transmission Date: 20141212
  Serious: Yes (Hospitalization)
  Sender: FDA-Public Use
  Company Number: US-PFIZER INC-2013371495

PATIENT
  Age: 76 Year
  Sex: Female

DRUGS (5)
  1. SUTENT [Suspect]
     Indication: RENAL CANCER
     Dosage: 50 MG, CYCLIC (4 WEEKS ON AND 2 WEEKS OFF)
     Dates: start: 20131011
  2. ZOFRAN [Concomitant]
     Dosage: UNK
  3. PROMETHAZINE HYDROCHLORIDE [Concomitant]
     Dosage: UNK
  4. HYDROCODONE W/ACETAMINOPHEN [Concomitant]
     Dosage: UNK
  5. ZYRTEC [Concomitant]
     Indication: HYPERSENSITIVITY
     Dosage: UNK

REACTIONS (5)
  - Malnutrition [Unknown]
  - Dehydration [Unknown]
  - Red blood cell count decreased [Unknown]
  - Muscular weakness [Unknown]
  - Urinary tract infection [Unknown]
